FAERS Safety Report 9220058 (Version 2)
Quarter: 2013Q2

REPORT INFORMATION
  Report Type: Spontaneous
  Country: IT (occurrence: None)
  Receive Date: 20130405
  Receipt Date: 20130610
  Transmission Date: 20140414
  Serious: Yes (Hospitalization)
  Sender: FDA-Public Use
  Company Number: SYM-2013-02364

PATIENT
  Age: 71 Year
  Sex: Female

DRUGS (11)
  1. 5-FU [Suspect]
     Indication: COLORECTAL CANCER METASTATIC
     Route: 040
     Dates: start: 20130130, end: 20130130
  2. IRINOTECAN [Suspect]
     Indication: COLORECTAL CANCER METASTATIC
     Route: 042
     Dates: start: 20130130, end: 20130130
  3. LEUCOVORIN [Suspect]
     Indication: COLORECTAL CANCER METASTATIC
     Route: 042
     Dates: start: 20130130, end: 20130130
  4. AFLIBERCEPT [Suspect]
     Indication: COLORECTAL CANCER METASTATIC
     Route: 042
     Dates: start: 20130130, end: 20130130
  5. CALCIUM CHANNEL BLOCKERS (CALCIUM CHANNEL BLOCKERS) [Concomitant]
  6. LOPERAMIDE (LOPERAMIDE) (LOPERAMIDE) [Concomitant]
  7. ANTISPASMODICS/ ANTICHOLINERGICS (ANTISPASMODICS/ ANTICHOLINERGICS) [Concomitant]
  8. ANTIFUNGALS (ANTIFUNGALS FOR SYSTEMIC USE) (NULL) [Concomitant]
  9. CORTICOSTEROIDS (CORTICOSTEROIDS) [Concomitant]
  10. BETA BLOCKING AGENTS [Suspect]
  11. ANGIOTENSIN II ANTAGONISTS [Concomitant]

REACTIONS (4)
  - Gastrointestinal toxicity [None]
  - Diarrhoea [None]
  - Nausea [None]
  - Vomiting [None]
